FAERS Safety Report 13871345 (Version 1)
Quarter: 2017Q3

REPORT INFORMATION
  Report Type: Spontaneous
  Country: ES (occurrence: ES)
  Receive Date: 20170816
  Receipt Date: 20170816
  Transmission Date: 20171127
  Serious: Yes (Other)
  Sender: FDA-Public Use
  Company Number: ES-BAYER-2017-150715

PATIENT
  Age: 57 Year
  Sex: Male

DRUGS (1)
  1. LEVITRA [Suspect]
     Active Substance: VARDENAFIL HYDROCHLORIDE TRIHYDRATE
     Indication: ERECTILE DYSFUNCTION
     Dosage: 10 MG, UNK
     Dates: start: 2014

REACTIONS (6)
  - Vertigo [Not Recovered/Not Resolved]
  - Myalgia [None]
  - Clumsiness [None]
  - Sleep attacks [None]
  - Gout [None]
  - Thyroid cancer [None]

NARRATIVE: CASE EVENT DATE: 20160706
